FAERS Safety Report 7249290-0 (Version None)
Quarter: 2011Q1

REPORT INFORMATION
  Report Type: 
  Country: None (occurrence: None)
  Receive Date: 20110128
  Receipt Date: 20101109
  Transmission Date: 20110831
  Serious: Yes (Hospitalization)
  Sender: FDA-Public Use
  Company Number: US-BAYER-201037587NA

PATIENT
  Sex: Female
  Weight: 81.633 kg

DRUGS (8)
  1. YAZ [Suspect]
     Indication: ACNE
     Dosage: UNK
     Dates: start: 20010101, end: 20030101
  2. YASMIN [Suspect]
     Indication: ACNE
     Dosage: UNK
  3. TRIVORA-21 [Concomitant]
     Indication: PRODUCT USED FOR UNKNOWN INDICATION
     Dosage: UNK
     Dates: start: 20030110, end: 20030216
  4. FUROSEMIDE [Concomitant]
     Indication: PRODUCT USED FOR UNKNOWN INDICATION
  5. ALBUTEROL [Concomitant]
     Indication: PRODUCT USED FOR UNKNOWN INDICATION
  6. HYDROCODONE [Concomitant]
     Indication: PRODUCT USED FOR UNKNOWN INDICATION
  7. OCELLA [Suspect]
     Indication: ACNE
     Dosage: UNK
  8. PREVACID [Concomitant]
     Indication: PRODUCT USED FOR UNKNOWN INDICATION

REACTIONS (9)
  - CHOLELITHIASIS [None]
  - DYSMENORRHOEA [None]
  - UTERINE LEIOMYOMA [None]
  - PAIN [None]
  - GALLBLADDER CHOLESTEROLOSIS [None]
  - UTERINE ENLARGEMENT [None]
  - OVARIAN CYST [None]
  - CHOLECYSTITIS CHRONIC [None]
  - MENORRHAGIA [None]
